FAERS Safety Report 6975188-9 (Version None)
Quarter: 2010Q3

REPORT INFORMATION
  Report Type: 
  Country: None (occurrence: None)
  Receive Date: 20100910
  Receipt Date: 20090212
  Transmission Date: 20110219
  Serious: No
  Sender: FDA-Public Use
  Company Number: US-WYE-H08192409

PATIENT
  Sex: Female
  Weight: 81.72 kg

DRUGS (14)
  1. PRISTIQ [Suspect]
     Indication: DEPRESSION
     Route: 048
     Dates: start: 20081101
  2. PRISTIQ [Suspect]
     Dosage: ^GRADUALLY INCREASED TO 400 MG DAILY^
     Route: 048
  3. PRISTIQ [Suspect]
     Dates: start: 20090101
  4. CLONAZEPAM [Concomitant]
  5. TRAZODONE HCL [Concomitant]
  6. STRATTERA [Concomitant]
  7. ARIPIPRAZOLE [Concomitant]
  8. ADDERALL 10 [Concomitant]
  9. OXYPHENBUTAZONE [Concomitant]
  10. CLONIDINE [Concomitant]
  11. CLARINEX [Concomitant]
  12. XANAX [Concomitant]
  13. XYREM [Concomitant]
  14. PROVIGIL [Concomitant]

REACTIONS (1)
  - DRUG INEFFECTIVE [None]
